FAERS Safety Report 12691195 (Version 1)
Quarter: 2016Q3

REPORT INFORMATION
  Report Type: Report from Study
  Country: ZA (occurrence: ZA)
  Receive Date: 20160826
  Receipt Date: 20160826
  Transmission Date: 20161109
  Serious: Yes (Hospitalization, Other)
  Sender: FDA-Public Use
  Company Number: ZA-ABBVIE-08P-143-0459758-00

PATIENT
  Age: 30 Year
  Sex: Female

DRUGS (7)
  1. FOLIC ACID. [Concomitant]
     Active Substance: FOLIC ACID
     Indication: HIV INFECTION
     Dates: start: 20080218
  2. ATAZANAVIR [Concomitant]
     Active Substance: ATAZANAVIR
     Indication: HIV INFECTION
     Route: 048
     Dates: start: 20080416, end: 20080620
  3. COMBIVIR [Concomitant]
     Active Substance: LAMIVUDINE\ZIDOVUDINE
     Indication: HIV INFECTION
     Dosage: 150/300 MG
     Route: 048
     Dates: start: 20080416, end: 20080620
  4. VITAMIN C [Concomitant]
     Active Substance: ASCORBIC ACID
     Indication: PRODUCT USED FOR UNKNOWN INDICATION
     Dates: start: 20080118
  5. ATAZANAVIR [Concomitant]
     Active Substance: ATAZANAVIR
     Route: 048
     Dates: end: 20080620
  6. VITAMIN B1 [Concomitant]
     Active Substance: THIAMINE HYDROCHLORIDE
     Indication: PRODUCT USED FOR UNKNOWN INDICATION
     Dates: start: 20080218
  7. RITONAVIR SOFT GELATIN CAPSULES [Suspect]
     Active Substance: RITONAVIR
     Indication: HIV INFECTION
     Route: 048
     Dates: start: 20080416, end: 20080620

REACTIONS (8)
  - Premature delivery [Unknown]
  - Exposure during pregnancy [Unknown]
  - Eclampsia [Unknown]
  - Pre-eclampsia [Recovered/Resolved]
  - Transaminases increased [Recovered/Resolved]
  - Caesarean section [Unknown]
  - Pneumonia [Recovered/Resolved]
  - Live birth [Unknown]

NARRATIVE: CASE EVENT DATE: 20080620
